FAERS Safety Report 5621030-8 (Version None)
Quarter: 2008Q1

REPORT INFORMATION
  Report Type: 
  Country: None (occurrence: None)
  Receive Date: 20080208
  Receipt Date: 20080128
  Transmission Date: 20080703
  Serious: Yes (Other)
  Sender: FDA-Public Use
  Company Number: GB-PFIZER INC-2008010106

PATIENT
  Age: 55 Year
  Sex: Male
  Weight: 91.1 kg

DRUGS (1)
  1. CHANTIX [Suspect]
     Indication: SMOKING CESSATION THERAPY
     Route: 048
     Dates: start: 20080109, end: 20080114

REACTIONS (3)
  - RASH [None]
  - SINUSITIS [None]
  - WHEEZING [None]
